FAERS Safety Report 11383001 (Version 1)
Quarter: 2015Q3

REPORT INFORMATION
  Report Type: Spontaneous
  Country: US (occurrence: US)
  Receive Date: 20150814
  Receipt Date: 20150814
  Transmission Date: 20151125
  Serious: No
  Sender: FDA-Public Use
  Company Number: US-PFIZER INC-2015268840

PATIENT
  Sex: Female

DRUGS (2)
  1. LYRICA [Suspect]
     Active Substance: PREGABALIN
     Indication: NEURALGIA
  2. LYRICA [Suspect]
     Active Substance: PREGABALIN
     Indication: SPINAL CORD INJURY
     Dosage: UNK

REACTIONS (2)
  - Oedema peripheral [Recovered/Resolved]
  - Abdominal distension [Recovered/Resolved]
